FAERS Safety Report 10424965 (Version 1)
Quarter: 2014Q3

REPORT INFORMATION
  Report Type: Spontaneous
  Country: US (occurrence: US)
  Receive Date: 20140902
  Receipt Date: 20140902
  Transmission Date: 20150326
  Serious: Yes (Disabling)
  Sender: FDA-Public Use
  Company Number: US-FRI-1000070329

PATIENT
  Age: 32 Year
  Sex: Female
  Weight: 66 kg

DRUGS (1)
  1. SAPHRIS [Suspect]
     Active Substance: ASENAPINE MALEATE
     Indication: BIPOLAR I DISORDER
     Route: 060
     Dates: start: 20111215, end: 20130620

REACTIONS (2)
  - Tardive dyskinesia [Not Recovered/Not Resolved]
  - Oral pain [Not Recovered/Not Resolved]
